FAERS Safety Report 4728113-5 (Version None)
Quarter: 2005Q3

REPORT INFORMATION
  Report Type: 
  Country: None (occurrence: None)
  Receive Date: 20050729
  Receipt Date: 20050622
  Transmission Date: 20060218
  Serious: Yes (Death, Hospitalization, Disabling, Other)
  Sender: FDA-Public Use
  Company Number: PHBS2005JP09027

PATIENT
  Age: 22 Year
  Sex: Female

DRUGS (30)
  1. NEORAL [Suspect]
     Indication: JUVENILE ARTHRITIS
     Dosage: 100 MG/D
     Route: 048
     Dates: start: 20031112, end: 20041125
  2. NEORAL [Suspect]
     Dosage: 100 MG/D
     Route: 048
     Dates: start: 20041214
  3. PREDONINE [Suspect]
     Indication: RHEUMATOID ARTHRITIS
     Dosage: 10 MG/D
     Route: 048
     Dates: start: 20020201, end: 20041102
  4. PREDONINE [Suspect]
     Dosage: 20 MG/D
     Route: 041
     Dates: start: 20041128, end: 20050115
  5. PREDONINE [Suspect]
     Dates: start: 19890101
  6. INFLIXIMAB [Suspect]
     Indication: RHEUMATOID ARTHRITIS
     Dosage: 100 MG/D
  7. GANCICLOVIR [Suspect]
     Indication: CYTOMEGALOVIRUS ENTERITIS
     Dosage: 320 MG/D
     Route: 041
     Dates: start: 20041215, end: 20041223
  8. VANCOMYCIN [Concomitant]
     Dosage: 500 MG/D
     Route: 041
     Dates: start: 20041223, end: 20041226
  9. BUSIRONE [Concomitant]
     Dosage: 100 MG/D
     Route: 041
     Dates: start: 20041224, end: 20050111
  10. VAGOSTIGMIN #1 [Concomitant]
     Dosage: 0.75 MG/D
     Route: 042
     Dates: start: 20041227, end: 20041231
  11. UROKINASE [Concomitant]
     Route: 041
     Dates: start: 20041130, end: 20041202
  12. HEPARIN [Concomitant]
     Route: 041
     Dates: start: 20041129, end: 20041216
  13. SANDIMMUNE [Suspect]
     Indication: JUVENILE ARTHRITIS
     Dosage: 100 MG/D
     Route: 041
     Dates: start: 20041126, end: 20041213
  14. REMICADE [Concomitant]
     Dosage: 100 MG/D
     Route: 041
  15. ROZECLART [Concomitant]
     Dosage: 2 G/D
     Route: 041
     Dates: start: 20041102, end: 20041107
  16. CIPROXAN [Concomitant]
     Dosage: 600 MG/D
     Route: 041
     Dates: start: 20041110, end: 20041111
  17. KEITEN [Concomitant]
     Dosage: 1 G/D
     Route: 041
     Dates: start: 20041119, end: 20041203
  18. GASTER [Concomitant]
     Dosage: 40 MG/D
     Route: 041
     Dates: start: 20041118, end: 20050103
  19. SOL-MELCORT [Concomitant]
     Dosage: 500 MG/D
     Route: 041
     Dates: start: 20041125, end: 20041127
  20. AZELASTINE HCL [Concomitant]
     Dosage: 0.5 UG/D
     Route: 048
     Dates: start: 20020801, end: 20041220
  21. CLINAX [Concomitant]
     Dosage: 100 MG/D
     Route: 048
     Dates: start: 20020801, end: 20041220
  22. WARFARIN SODIUM [Concomitant]
     Dosage: 5 MG/D
     Route: 048
     Dates: start: 20041213, end: 20041218
  23. DEXAMETHASONE [Concomitant]
     Route: 048
     Dates: start: 20041122, end: 20041216
  24. RHEUMATREX [Concomitant]
     Dosage: 4 MG/D
     Route: 048
     Dates: start: 20020801, end: 20041201
  25. METHOTREXATE [Concomitant]
     Dosage: 5 MG/D
     Route: 048
     Dates: start: 20021101, end: 20031114
  26. FLAGYL [Concomitant]
     Dosage: 5 MG/D
     Route: 048
     Dates: start: 20041213, end: 20041228
  27. UBIRON [Concomitant]
     Dosage: 900 MG/D
     Route: 048
     Dates: start: 20041215, end: 20050115
  28. TIENAM [Concomitant]
     Dosage: 1000 MG/D
     Route: 041
     Dates: start: 20041204, end: 20041223
  29. OMEPRAZOLE [Concomitant]
     Dosage: 40 MG/D
     Dates: start: 20041209, end: 20041214
  30. GRAN [Concomitant]
     Dosage: 150 MG/D
     Dates: start: 20041213, end: 20041216

REACTIONS (28)
  - ABDOMINAL PAIN [None]
  - ALANINE AMINOTRANSFERASE INCREASED [None]
  - ASPARTATE AMINOTRANSFERASE INCREASED [None]
  - BLOOD BILIRUBIN INCREASED [None]
  - BLOOD PRESSURE DECREASED [None]
  - C-REACTIVE PROTEIN INCREASED [None]
  - CYTOMEGALOVIRUS ENTEROCOLITIS [None]
  - DEEP VEIN THROMBOSIS [None]
  - DEPRESSED LEVEL OF CONSCIOUSNESS [None]
  - DIARRHOEA [None]
  - DISEASE PROGRESSION [None]
  - DISSEMINATED INTRAVASCULAR COAGULATION [None]
  - GAMMA-GLUTAMYLTRANSFERASE INCREASED [None]
  - GASTROINTESTINAL AMYLOIDOSIS [None]
  - GASTROINTESTINAL EROSION [None]
  - GASTROINTESTINAL HAEMORRHAGE [None]
  - HAEMATOCHEZIA [None]
  - HEPATIC FUNCTION ABNORMAL [None]
  - INTESTINAL OBSTRUCTION [None]
  - JAUNDICE [None]
  - LIFE SUPPORT [None]
  - MELAENA [None]
  - PYREXIA [None]
  - SHOCK [None]
  - SURGERY [None]
  - THROMBOCYTHAEMIA [None]
  - VOMITING [None]
  - WHITE BLOOD CELL COUNT INCREASED [None]
